FAERS Safety Report 10164018 (Version 2)
Quarter: 2014Q2

REPORT INFORMATION
  Report Type: Spontaneous
  Country: US (occurrence: US)
  Receive Date: 20140510
  Receipt Date: 20140510
  Transmission Date: 20141212
  Serious: No
  Sender: FDA-Public Use
  Company Number: US-BRISTOL-MYERS SQUIBB COMPANY-19810662

PATIENT
  Age: 66 Year
  Sex: Female

DRUGS (2)
  1. BYDUREON [Suspect]
  2. BYETTA [Suspect]

REACTIONS (4)
  - Dizziness [Unknown]
  - Blood pressure increased [Unknown]
  - Weight increased [Unknown]
  - Nausea [Unknown]
